FAERS Safety Report 10596500 (Version 2)
Quarter: 2014Q4

REPORT INFORMATION
  Report Type: Spontaneous
  Country: JP (occurrence: JP)
  Receive Date: 20141120
  Receipt Date: 20141223
  Transmission Date: 20150529
  Serious: Yes (Death, Other)
  Sender: FDA-Public Use
  Company Number: PHHY2014JP150940

PATIENT
  Age: 64 Year
  Sex: Female

DRUGS (5)
  1. HUMAN NORMAL IMMUNOGLOBULIN [Suspect]
     Active Substance: HUMAN IMMUNOGLOBULIN G
     Indication: INTERSTITIAL LUNG DISEASE
     Route: 065
  2. CYCLOPHOSPHAMIDE. [Suspect]
     Active Substance: CYCLOPHOSPHAMIDE
     Indication: INTERSTITIAL LUNG DISEASE
     Route: 065
  3. CICLOSPORIN [Suspect]
     Active Substance: CYCLOSPORINE
     Indication: DERMATOMYOSITIS
     Dosage: 150 MG, QD
     Route: 048
     Dates: start: 201208, end: 201210
  4. METHYLPREDNISOLONE. [Suspect]
     Active Substance: METHYLPREDNISOLONE
     Indication: SJOGREN^S SYNDROME
     Route: 065
  5. PREDNISOLONE. [Suspect]
     Active Substance: PREDNISOLONE
     Indication: SJOGREN^S SYNDROME
     Dosage: 60 MG, QD
     Route: 048

REACTIONS (6)
  - Condition aggravated [Unknown]
  - Interstitial lung disease [Fatal]
  - Pneumomediastinum [Unknown]
  - Drug ineffective [Unknown]
  - Skin lesion [Unknown]
  - Product use issue [Unknown]

NARRATIVE: CASE EVENT DATE: 201210
